FAERS Safety Report 18280634 (Version 2)
Quarter: 2020Q4

REPORT INFORMATION
  Report Type: Spontaneous
  Country: JP (occurrence: JP)
  Receive Date: 20200917
  Receipt Date: 20201016
  Transmission Date: 20210113
  Serious: Yes (Other)
  Sender: FDA-Public Use
  Company Number: JP-009507513-2009JPN006801

PATIENT
  Age: 8 Decade
  Sex: Male

DRUGS (6)
  1. METFORMIN HYDROCHLORIDE. [Concomitant]
     Active Substance: METFORMIN HYDROCHLORIDE
     Indication: TYPE 2 DIABETES MELLITUS
     Dosage: 500 MG
     Route: 065
     Dates: start: 20190319, end: 20190422
  2. ATORVASTATIN [Concomitant]
     Active Substance: ATORVASTATIN
     Indication: DYSLIPIDAEMIA
     Dosage: 5 MG
     Route: 065
     Dates: start: 20190819
  3. GLACTIV [Suspect]
     Active Substance: SITAGLIPTIN
     Dosage: 50 MG
     Route: 048
     Dates: start: 201907, end: 20191001
  4. JANUVIA [Suspect]
     Active Substance: SITAGLIPTIN PHOSPHATE
  5. GLACTIV [Suspect]
     Active Substance: SITAGLIPTIN
     Indication: TYPE 2 DIABETES MELLITUS
     Dosage: 100 MG
     Route: 048
     Dates: start: 20190422, end: 201907
  6. METFORMIN HYDROCHLORIDE. [Concomitant]
     Active Substance: METFORMIN HYDROCHLORIDE
     Dosage: 500 MG
     Route: 065
     Dates: start: 201907

REACTIONS (3)
  - Thrombocytopenia [Recovered/Resolved]
  - Cataract [Unknown]
  - Dyslipidaemia [Unknown]

NARRATIVE: CASE EVENT DATE: 2019
